FAERS Safety Report 4537372-3 (Version None)
Quarter: 2004Q4

REPORT INFORMATION
  Report Type: 
  Country: None (occurrence: None)
  Receive Date: 20041223
  Receipt Date: 20041216
  Transmission Date: 20050328
  Serious: Yes (Death, Other)
  Sender: FDA-Public Use
  Company Number: US-ABBOTT-04P-163-0283999-00

PATIENT
  Sex: Female
  Weight: 125 kg

DRUGS (9)
  1. DEPAKOTE [Suspect]
     Indication: PSYCHOTIC DISORDER
  2. DEPAKOTE [Suspect]
     Indication: MANIA
  3. CLOZAPINE [Suspect]
     Indication: SCHIZOAFFECTIVE DISORDER
     Route: 048
     Dates: start: 20040908, end: 20040926
  4. HYDROCHLOROTHIAZIDE [Concomitant]
     Indication: HYPERTENSION
     Route: 048
     Dates: start: 20040823, end: 20040926
  5. LISINOPRIL [Concomitant]
     Indication: DRUG USE FOR UNKNOWN INDICATION
     Route: 048
     Dates: start: 20040823, end: 20040926
  6. METFORMIN HCL [Concomitant]
     Indication: DIABETES MELLITUS
     Route: 048
     Dates: start: 20040823, end: 20040926
  7. GLIMEPIRIDE [Concomitant]
     Indication: DIABETES MELLITUS
     Route: 048
     Dates: start: 20040913, end: 20040926
  8. ZIPRASIDONE HYDROCHLORIDE [Concomitant]
     Indication: DRUG USE FOR UNKNOWN INDICATION
  9. HALDOL [Concomitant]
     Indication: DRUG USE FOR UNKNOWN INDICATION

REACTIONS (7)
  - BRONCHITIS [None]
  - COMA [None]
  - DIABETES MELLITUS INADEQUATE CONTROL [None]
  - HEADACHE [None]
  - NAUSEA [None]
  - RESPIRATORY FAILURE [None]
  - THERAPEUTIC RESPONSE DECREASED [None]
